FAERS Safety Report 10905879 (Version 1)
Quarter: 2015Q1

REPORT INFORMATION
  Report Type: Spontaneous
  Country: US (occurrence: US)
  Receive Date: 20150311
  Receipt Date: 20150311
  Transmission Date: 20150721
  Serious: Yes (Other)
  Sender: FDA-Public Use
  Company Number: US-ACTAVIS-2015-04394

PATIENT
  Age: 26 Year
  Sex: Female

DRUGS (4)
  1. PROGESTERONE (IN SESAME OIL) (WATSON LABORATORIES) [Suspect]
     Active Substance: PROGESTERONE
     Dosage: 50 MG, DAILY
     Route: 030
  2. ENDOMETRIN [Suspect]
     Active Substance: PROGESTERONE
     Indication: PRODUCT USED FOR UNKNOWN INDICATION
     Dosage: UNK
     Route: 067
  3. PROGESTERONE (IN SESAME OIL) (WATSON LABORATORIES) [Suspect]
     Active Substance: PROGESTERONE
     Indication: PRODUCT USED FOR UNKNOWN INDICATION
     Dosage: UNK
     Route: 030
  4. CRINONE [Suspect]
     Active Substance: PROGESTERONE
     Indication: PRODUCT USED FOR UNKNOWN INDICATION
     Dosage: UNK
     Route: 067

REACTIONS (2)
  - Autoimmune dermatitis [Recovered/Resolved]
  - Maternal exposure during pregnancy [Unknown]
